FAERS Safety Report 8150016-7 (Version None)
Quarter: 2012Q1

REPORT INFORMATION
  Report Type: 
  Country: None (occurrence: None)
  Receive Date: 20120218
  Receipt Date: 20120216
  Transmission Date: 20120608
  Serious: Yes (Other)
  Sender: FDA-Public Use
  Company Number: US-SANTEN INC.-INC-11-000228

PATIENT
  Sex: Male
  Weight: 102.15 kg

DRUGS (7)
  1. COMBIGAN [Concomitant]
     Route: 047
     Dates: start: 20111018
  2. DUREZOL [Concomitant]
     Dosage: LEFT EYE
     Route: 047
     Dates: start: 20110819
  3. AZOPT [Concomitant]
     Indication: GLAUCOMA
     Dosage: LEFT EYE
     Route: 047
     Dates: start: 20110830
  4. SIROLIMUS [Suspect]
     Route: 031
     Dates: start: 20110818, end: 20110818
  5. SIROLIMUS [Suspect]
     Route: 031
     Dates: start: 20111018, end: 20111018
  6. IBUPROFEN (ADVIL) [Concomitant]
     Indication: HEADACHE
     Route: 048
     Dates: start: 20090101
  7. SIROLIMUS [Suspect]
     Route: 031
     Dates: start: 20111215, end: 20111215

REACTIONS (1)
  - UVEITIS [None]
